FAERS Safety Report 8764393 (Version 1)
Quarter: 2012Q4

REPORT INFORMATION
  Report Type: 
  Country: US (occurrence: US)
  Receive Date: 20120831
  Receipt Date: 20120831
  Transmission Date: 20130627
  Serious: Yes (Hospitalization)
  Sender: FDA-Public Use
  Company Number: PHEH2012US017013

PATIENT
  Age: 80 Year
  Sex: Male

DRUGS (1)
  1. RECLAST [Suspect]
     Indication: OSTEOPOROSIS
     Dosage: 5 mg, once yearly
     Route: 042
     Dates: start: 20120824

REACTIONS (5)
  - Disorientation [Recovering/Resolving]
  - Delirium [Recovering/Resolving]
  - Flushing [Recovering/Resolving]
  - Vomiting [Recovering/Resolving]
  - Blood creatinine increased [Recovering/Resolving]
